FAERS Safety Report 9027912 (Version 1)
Quarter: 2013Q1

REPORT INFORMATION
  Report Type: Spontaneous
  Country: FR (occurrence: FR)
  Receive Date: 20130124
  Receipt Date: 20130124
  Transmission Date: 20140127
  Serious: Yes (Other)
  Sender: FDA-Public Use
  Company Number: FR-AMGEN-FRASP2011068661

PATIENT
  Age: 37 Year
  Sex: Female
  Weight: 56 kg

DRUGS (6)
  1. ARANESP [Suspect]
     Indication: DIABETIC NEPHROPATHY
     Dosage: 60 MUG, QMO
     Route: 065
     Dates: start: 20111219, end: 20120222
  2. FERINJECT [Concomitant]
     Dosage: 50 UNK, UNK
     Dates: end: 20120116
  3. TAREG [Concomitant]
     Dosage: 40 MG, UNK
     Route: 048
     Dates: end: 20111118
  4. GUTRON [Concomitant]
     Dosage: 2.5 MG, UNK
     Route: 048
     Dates: end: 20121118
  5. PROZAC [Concomitant]
     Dosage: 20 MG, UNK
     Dates: end: 20111118
  6. SPECIAFOLDINE [Concomitant]
     Dosage: 0.4 MG, UNK
     Dates: end: 20111118

REACTIONS (1)
  - Premature delivery [Unknown]
